FAERS Safety Report 24011112 (Version 1)
Quarter: 2024Q2

REPORT INFORMATION
  Report Type: Spontaneous
  Country: US (occurrence: US)
  Receive Date: 20240625
  Receipt Date: 20240625
  Transmission Date: 20240716
  Serious: No
  Sender: FDA-Public Use
  Company Number: US-AMRYT PHARMACEUTICALS DAC-AEGR007109

PATIENT

DRUGS (1)
  1. FILSUVEZ [Suspect]
     Active Substance: BIRCH TRITERPENES
     Indication: Product used for unknown indication
     Dosage: 10 PERCENT W/W GEL (23.4 G), APPLY A 1 MM LAYER TO AFFECTED WOUND SURFACE (S) AT EACH DRESSING CHANG
     Route: 061

REACTIONS (1)
  - Multiple use of single-use product [Unknown]
